FAERS Safety Report 19221810 (Version 2)
Quarter: 2021Q3

REPORT INFORMATION
  Report Type: Spontaneous
  Country: JP (occurrence: JP)
  Receive Date: 20210505
  Receipt Date: 20210903
  Transmission Date: 20211014
  Serious: Yes (Death)
  Sender: FDA-Public Use
  Company Number: JP-ALLERGAN-2117202US

PATIENT
  Sex: Male

DRUGS (4)
  1. OLANZAPINE. [Concomitant]
     Active Substance: OLANZAPINE
     Dosage: 2.5 MG
     Dates: start: 20200907, end: 20201027
  2. ASENAPINE MALEATE ? BP [Suspect]
     Active Substance: ASENAPINE MALEATE
     Indication: CEREBRAL DISORDER
     Dosage: 2.5 MG, PRN
     Route: 060
     Dates: start: 20200907, end: 20200908
  3. QUETIAPINE [QUETIAPINE FUMARATE] [Concomitant]
     Active Substance: QUETIAPINE FUMARATE
     Dosage: 25 MG
     Dates: start: 20200907, end: 20201027
  4. LEMBOREXANT [Concomitant]
     Active Substance: LEMBOREXANT
     Dosage: UNK
     Dates: start: 20200907, end: 20201027

REACTIONS (1)
  - Pneumonia aspiration [Fatal]
